FAERS Safety Report 4800286-5 (Version None)
Quarter: 2005Q4

REPORT INFORMATION
  Report Type: 
  Country: None (occurrence: None)
  Receive Date: 20051017
  Receipt Date: 20030324
  Transmission Date: 20060501
  Serious: Yes (Death, Life-Threatening, Hospitalization)
  Sender: FDA-Public Use
  Company Number: US-BRISTOL-MYERS SQUIBB COMPANY-12176079

PATIENT
  Age: 71 Year
  Sex: Male

DRUGS (9)
  1. CARBOPLATIN [Suspect]
     Indication: NON-SMALL CELL LUNG CANCER
     Route: 042
     Dates: start: 20020515, end: 20020529
  2. PACLITAXEL [Suspect]
     Indication: NON-SMALL CELL LUNG CANCER
     Route: 042
     Dates: start: 20020515, end: 20020529
  3. CETUXIMAB [Suspect]
     Indication: NON-SMALL CELL LUNG CANCER
     Dosage: 400 MG/250 MG/M2; CYCLE 1: 15-MAY-2002
     Route: 042
     Dates: start: 20020522, end: 20020529
  4. OXYCONTIN [Suspect]
  5. SYNTHROID [Concomitant]
  6. MIRALAX [Concomitant]
  7. OXYCODONE HCL [Concomitant]
     Dosage: AS NECESSARY
  8. PROCRIT [Concomitant]
  9. MEGACE [Concomitant]

REACTIONS (3)
  - ANAEMIA [None]
  - MALIGNANT NEOPLASM PROGRESSION [None]
  - NEUTROPENIA [None]
